FAERS Safety Report 5376747-X (Version None)
Quarter: 2007Q3

REPORT INFORMATION
  Report Type: 
  Country: None (occurrence: None)
  Receive Date: 20070703
  Receipt Date: 20070626
  Transmission Date: 20080115
  Serious: Yes (Hospitalization, Other)
  Sender: FDA-Public Use
  Company Number: PHBS2007JP06985

PATIENT
  Age: 69 Year
  Sex: Female
  Weight: 59 kg

DRUGS (7)
  1. DIOVAN [Suspect]
     Indication: HYPERTENSION
     Dosage: 80 MG/DAY
     Route: 048
     Dates: end: 20070319
  2. AMARYL [Suspect]
     Indication: HYPERTENSION
     Dosage: 1 MG/DAY
     Route: 048
     Dates: end: 20070319
  3. NORVASC [Suspect]
     Indication: HYPERTENSION
     Dosage: 5 MG/DAY
     Route: 048
     Dates: end: 20070319
  4. NORVASC [Suspect]
     Dates: start: 20070404
  5. GLYCYRON [Suspect]
     Indication: HEPATIC CIRRHOSIS
     Dosage: 3 DF/DAY
     Route: 048
     Dates: end: 20070319
  6. FLUITRAN [Suspect]
     Indication: OEDEMA
     Dosage: 2 MG/DAY
     Route: 048
     Dates: end: 20070319
  7. ALDACTONE [Concomitant]
     Indication: OEDEMA DUE TO HEPATIC DISEASE
     Dosage: 25 MG/D
     Route: 048
     Dates: start: 20070319

REACTIONS (14)
  - ALANINE AMINOTRANSFERASE INCREASED [None]
  - ASPARTATE AMINOTRANSFERASE INCREASED [None]
  - BLOOD ALKALINE PHOSPHATASE INCREASED [None]
  - BLOOD BILIRUBIN INCREASED [None]
  - BLOOD CREATINE PHOSPHOKINASE INCREASED [None]
  - BLOOD POTASSIUM DECREASED [None]
  - BLOOD SODIUM INCREASED [None]
  - HYPOKALAEMIA [None]
  - MONOCYTE COUNT INCREASED [None]
  - MUSCLE SPASMS [None]
  - OEDEMA [None]
  - PLATELET COUNT DECREASED [None]
  - WEIGHT DECREASED [None]
  - WHITE BLOOD CELL COUNT DECREASED [None]
